FAERS Safety Report 6113004-8 (Version None)
Quarter: 2009Q1

REPORT INFORMATION
  Report Type: 
  Country: None (occurrence: None)
  Receive Date: 20090312
  Receipt Date: 20090306
  Transmission Date: 20090719
  Serious: Yes (Hospitalization)
  Sender: FDA-Public Use
  Company Number: A0772647A

PATIENT
  Age: 74 Year
  Sex: Female
  Weight: 58 kg

DRUGS (3)
  1. SERETIDE [Suspect]
     Indication: BRONCHITIS
     Dosage: 1PUFF TWICE PER DAY
     Dates: start: 20090223, end: 20090228
  2. NIFEDIPINE [Concomitant]
     Dates: start: 19970101
  3. ALDACTONE [Concomitant]
     Dates: start: 19970101

REACTIONS (5)
  - GASTRITIS [None]
  - HAEMORRHAGE [None]
  - HYPERTHERMIA [None]
  - MELAENA [None]
  - VOMITING [None]
